FAERS Safety Report 7350129-3 (Version None)
Quarter: 2011Q1

REPORT INFORMATION
  Report Type: 
  Country: None (occurrence: None)
  Receive Date: 20110314
  Receipt Date: 20110308
  Transmission Date: 20110831
  Serious: Yes (Death)
  Sender: FDA-Public Use
  Company Number: A0915091A

PATIENT
  Age: 76 Year
  Sex: Female
  Weight: 89 kg

DRUGS (2)
  1. TYKERB [Suspect]
     Dosage: 1250MG IN THE MORNING
     Route: 048
     Dates: start: 20101111
  2. XELODA [Concomitant]

REACTIONS (1)
  - DEATH [None]
